FAERS Safety Report 25104352 (Version 1)
Quarter: 2025Q1

REPORT INFORMATION
  Report Type: Spontaneous
  Country: US (occurrence: US)
  Receive Date: 20250321
  Receipt Date: 20250321
  Transmission Date: 20250409
  Serious: No
  Sender: COREPHARMA LLC
  Company Number: US-CorePharma LLC-2173389

PATIENT

DRUGS (1)
  1. LISINOPRIL [Suspect]
     Active Substance: LISINOPRIL
     Indication: Blood pressure measurement

REACTIONS (4)
  - Adverse drug reaction [Unknown]
  - Treatment noncompliance [Unknown]
  - Dizziness [Recovered/Resolved]
  - Drug interaction [Unknown]
